FAERS Safety Report 15837301 (Version 1)
Quarter: 2018Q4

REPORT INFORMATION
  Report Type: Spontaneous
  Country: US (occurrence: US)
  Receive Date: 20181220
  Receipt Date: 20181220
  Transmission Date: 20190205
  Serious: No
  Sender: FDA-Public Use
  Company Number: None

PATIENT
  Age: 65 Year
  Sex: Female

DRUGS (1)
  1. IBRANCE [Suspect]
     Active Substance: PALBOCICLIB
     Indication: BREAST CANCER
     Route: 048
     Dates: start: 201810, end: 201812

REACTIONS (4)
  - Decreased appetite [None]
  - Therapy cessation [None]
  - Oropharyngeal pain [None]
  - Neutropenia [None]

NARRATIVE: CASE EVENT DATE: 20181220
